FAERS Safety Report 6983217-1 (Version None)
Quarter: 2010Q3

REPORT INFORMATION
  Report Type: 
  Country: None (occurrence: None)
  Receive Date: 20100914
  Receipt Date: 20100902
  Transmission Date: 20110219
  Serious: Yes (Death)
  Sender: FDA-Public Use
  Company Number: JP-ABBOTT-10P-087-0670371-00

PATIENT
  Age: 53 Year
  Sex: Female

DRUGS (6)
  1. LEUPROLIDE ACETATE [Suspect]
     Indication: BREAST CANCER FEMALE
     Route: 058
     Dates: start: 20061219
  2. TAMOXIFEN CITRATE [Concomitant]
     Indication: BREAST CANCER FEMALE
     Route: 048
     Dates: start: 20061219
  3. ZOMETA [Concomitant]
     Indication: METASTASES TO BONE
     Route: 042
     Dates: start: 20061212
  4. FLUOROURACIL [Concomitant]
     Indication: PRODUCT USED FOR UNKNOWN INDICATION
     Route: 042
     Dates: start: 20070111, end: 20070426
  5. FARMORUBICIN [Concomitant]
     Indication: PRODUCT USED FOR UNKNOWN INDICATION
     Route: 042
     Dates: start: 20070111, end: 20070426
  6. ENDOXAN [Concomitant]
     Indication: PRODUCT USED FOR UNKNOWN INDICATION
     Route: 042
     Dates: start: 20070111, end: 20070426

REACTIONS (1)
  - BREAST CANCER FEMALE [None]
